FAERS Safety Report 8909848 (Version 2)
Quarter: 2012Q4

REPORT INFORMATION
  Report Type: 
  Country: US (occurrence: US)
  Receive Date: 20121114
  Receipt Date: 20121220
  Transmission Date: 20130627
  Serious: Yes (Other)
  Sender: FDA-Public Use
  Company Number: US-PFIZER INC-2012279918

PATIENT
  Age: 75 Year
  Sex: Female
  Weight: 61.68 kg

DRUGS (8)
  1. REVATIO [Suspect]
     Indication: SCLERODERMA
     Dosage: 20 mg, daily
     Dates: start: 2010
  2. NIFEDIPINE [Suspect]
     Indication: LUPUS ERYTHEMATOSUS
     Dosage: UNK, daily
     Dates: start: 2011
  3. NIFEDIPINE [Suspect]
     Dosage: 10 mg, 3x/day
  4. NIFEDIPINE [Suspect]
     Dosage: UNK
  5. CITALOPRAM HYDROBROMIDE [Suspect]
     Indication: DEPRESSION
     Dosage: 20 mg, daily
     Dates: start: 2012
  6. PROCRIT [Suspect]
     Indication: ANEMIA
     Dosage: UNK, monthly
  7. IRON [Suspect]
     Indication: ANEMIA
     Dosage: UNK
     Dates: start: 2012
  8. PLAQUENIL [Suspect]
     Indication: AUTOIMMUNE DISORDER
     Dosage: UNK
     Dates: end: 2012

REACTIONS (4)
  - Anaemia [Unknown]
  - Arthropathy [Not Recovered/Not Resolved]
  - Skin discolouration [Recovering/Resolving]
  - Weight decreased [Not Recovered/Not Resolved]
